FAERS Safety Report 10313795 (Version 1)
Quarter: 2014Q3

REPORT INFORMATION
  Report Type: Spontaneous
  Country: US (occurrence: US)
  Receive Date: 20140718
  Receipt Date: 20140718
  Transmission Date: 20150326
  Serious: Yes (Other)
  Sender: FDA-Public Use
  Company Number: US-PFIZER INC-2014194232

PATIENT
  Age: 48 Year
  Sex: Female

DRUGS (12)
  1. WARFARIN [Interacting]
     Active Substance: WARFARIN
     Dosage: 5 MG, DAILY (MTWRSSU)
  2. ASPIRIN. [Concomitant]
     Active Substance: ASPIRIN
     Dosage: 325MG, UNK
  3. METHIMAZOLE. [Suspect]
     Active Substance: METHIMAZOLE
     Indication: BASEDOW^S DISEASE
     Dosage: 10 MG, DAILY
  4. METOPROLOL [Concomitant]
     Active Substance: METOPROLOL
     Dosage: 12.5 MG, 2X/DAY
  5. WARFARIN [Interacting]
     Active Substance: WARFARIN
     Dosage: 2 MG, DAILY
  6. POTASSIUM CHLORIDE. [Concomitant]
     Active Substance: POTASSIUM CHLORIDE
     Dosage: 40 MEQ/L, UNK
  7. WARFARIN [Interacting]
     Active Substance: WARFARIN
     Dosage: 1 MG, DAILY
  8. WARFARIN [Interacting]
     Active Substance: WARFARIN
     Indication: CEREBROVASCULAR ACCIDENT PROPHYLAXIS
     Dosage: 5 MG, DAILY
  9. BENAZEPRIL [Concomitant]
     Active Substance: BENAZEPRIL\BENAZEPRIL HYDROCHLORIDE
     Dosage: 5 MG, DAILY
  10. WARFARIN [Interacting]
     Active Substance: WARFARIN
     Dosage: 3 MG, DAILY
  11. WARFARIN [Interacting]
     Active Substance: WARFARIN
     Dosage: 4 MG, DAILY
  12. WARFARIN [Interacting]
     Active Substance: WARFARIN
     Dosage: 7.5 MG, DAILY (F)

REACTIONS (2)
  - Drug interaction [Recovered/Resolved]
  - Anticoagulation drug level below therapeutic [Recovered/Resolved]
